FAERS Safety Report 25182929 (Version 1)
Quarter: 2025Q2

REPORT INFORMATION
  Report Type: Spontaneous
  Country: US (occurrence: US)
  Receive Date: 20250410
  Receipt Date: 20250410
  Transmission Date: 20250716
  Serious: No
  Sender: ROCHE
  Company Number: US-ROCHE-10000250660

PATIENT
  Sex: Female

DRUGS (3)
  1. PHESGO [Suspect]
     Active Substance: HYALURONIDASE-ZZXF\PERTUZUMAB\TRASTUZUMAB
     Indication: HER2 positive breast cancer
     Route: 058
  2. LETROZOLE [Concomitant]
     Active Substance: LETROZOLE
  3. FASLODEX [Concomitant]
     Active Substance: FULVESTRANT

REACTIONS (3)
  - Skin exfoliation [Unknown]
  - Muscle spasms [Unknown]
  - Skin ulcer [Unknown]
